FAERS Safety Report 21354168 (Version 1)
Quarter: 2022Q3

REPORT INFORMATION
  Report Type: Spontaneous
  Country: US (occurrence: US)
  Receive Date: 20220920
  Receipt Date: 20220920
  Transmission Date: 20221026
  Serious: No
  Sender: FDA-Public Use
  Company Number: US-BRISTOL-MYERS SQUIBB COMPANY-2022-107055

PATIENT
  Age: 54 Year
  Sex: Male

DRUGS (2)
  1. SPRYCEL [Suspect]
     Active Substance: DASATINIB
     Indication: Chronic myeloid leukaemia
     Dosage: ONCE DAILY
     Route: 048
     Dates: start: 20220805
  2. SPRYCEL [Suspect]
     Active Substance: DASATINIB
     Dosage: ONCE DAILY
     Route: 048
     Dates: start: 20220810

REACTIONS (2)
  - Diarrhoea [Unknown]
  - Fatigue [Unknown]
